FAERS Safety Report 8539973-4 (Version None)
Quarter: 2012Q3

REPORT INFORMATION
  Report Type: 
  Country: None (occurrence: None)
  Receive Date: 20120726
  Receipt Date: 20120720
  Transmission Date: 20120928
  Serious: Yes (Other)
  Sender: FDA-Public Use
  Company Number: PHHY2012US062636

PATIENT
  Age: 71 Year
  Sex: Male

DRUGS (3)
  1. DONEPEZIL HCL [Suspect]
     Dosage: 10 MG, DAILY
  2. DONEPEZIL HCL [Suspect]
     Indication: SCHIZOPHRENIA, PARANOID TYPE
     Dosage: 5 MG, DAILY
  3. QUETIAPINE [Concomitant]
     Dosage: 400 MG, QD

REACTIONS (5)
  - MANIA [None]
  - EUPHORIC MOOD [None]
  - INSOMNIA [None]
  - LOGORRHOEA [None]
  - PSYCHOMOTOR HYPERACTIVITY [None]
